FAERS Safety Report 9447652 (Version 1)
Quarter: 2013Q3

REPORT INFORMATION
  Report Type: Spontaneous
  Country: FR (occurrence: DE)
  Receive Date: 20130805
  Receipt Date: 20130805
  Transmission Date: 20140515
  Serious: Yes (Other)
  Sender: FDA-Public Use
  Company Number: DE-SEPTODONT-201301361

PATIENT
  Sex: Female

DRUGS (1)
  1. ORAVERSE [Suspect]
     Indication: ANAESTHESIA REVERSAL
     Route: 004

REACTIONS (4)
  - Haemorrhage [None]
  - Hypoaesthesia [None]
  - Cardiovascular disorder [None]
  - Drug ineffective [None]
